FAERS Safety Report 7632288-8 (Version None)
Quarter: 2011Q3

REPORT INFORMATION
  Report Type: 
  Country: None (occurrence: None)
  Receive Date: 20110725
  Receipt Date: 20100713
  Transmission Date: 20111222
  Serious: Yes (Other)
  Sender: FDA-Public Use
  Company Number: US-BRISTOL-MYERS SQUIBB COMPANY-15194376

PATIENT
  Sex: Male

DRUGS (2)
  1. COUMADIN [Suspect]
     Route: 065
  2. CLARITIN [Suspect]
     Indication: HYPERSENSITIVITY
     Dosage: TABLET
     Route: 048

REACTIONS (1)
  - HAEMOPTYSIS [None]
